FAERS Safety Report 12289231 (Version 3)
Quarter: 2016Q2

REPORT INFORMATION
  Report Type: Spontaneous
  Country: US (occurrence: US)
  Receive Date: 20160421
  Receipt Date: 20160428
  Transmission Date: 20160815
  Serious: No
  Sender: FDA-Public Use
  Company Number: US-009507513-1604USA000971

PATIENT
  Age: 25 Year
  Sex: Female
  Weight: 126.98 kg

DRUGS (1)
  1. NEXPLANON [Suspect]
     Active Substance: ETONOGESTREL
     Indication: CONTRACEPTION
     Dosage: 68 MG, EVERY THREE YEARS
     Route: 059
     Dates: start: 20151221, end: 2016

REACTIONS (4)
  - Weight increased [Unknown]
  - Menorrhagia [Unknown]
  - Implant site swelling [Unknown]
  - Complication associated with device [Recovered/Resolved]

NARRATIVE: CASE EVENT DATE: 20151221
